FAERS Safety Report 23148990 (Version 3)
Quarter: 2024Q4

REPORT INFORMATION
  Report Type: Report from Study
  Country: JP (occurrence: JP)
  Receive Date: 20231106
  Receipt Date: 20241026
  Transmission Date: 20250114
  Serious: Yes (Death, Hospitalization, Other)
  Sender: ABBVIE
  Company Number: JP-TAKEDA-2023TJP014604

PATIENT
  Age: 75 Year
  Sex: Male
  Weight: 49 kg

DRUGS (3)
  1. LEUPROLIDE ACETATE [Suspect]
     Active Substance: LEUPROLIDE ACETATE
     Indication: Bulbospinal muscular atrophy congenital
     Dosage: 11.25 MILLIGRAM, Q3MONTHS
     Route: 058
     Dates: start: 20170927, end: 20230705
  2. CARBOCYSTEINE [Concomitant]
     Active Substance: CARBOCYSTEINE
     Indication: Bronchitis chronic
     Dosage: TIME INTERVAL: 0.33333333 DAYS: 500 MILLIGRAM, TID
     Route: 048
     Dates: start: 20160323, end: 20230919
  3. DIETARY SUPPLEMENT\UBIDECARENONE [Concomitant]
     Active Substance: DIETARY SUPPLEMENT\UBIDECARENONE
     Indication: Prophylaxis
     Dosage: TIME INTERVAL: 0.33333333 DAYS: 10 MILLIGRAM, TID
     Route: 048
     Dates: start: 20141203, end: 20230919

REACTIONS (2)
  - Pneumonia aspiration [Fatal]
  - Pneumonia [Fatal]

NARRATIVE: CASE EVENT DATE: 20230919
